FAERS Safety Report 8894973 (Version 1)
Quarter: 2012Q4

REPORT INFORMATION
  Report Type: 
  Country: EC (occurrence: EC)
  Receive Date: 20121108
  Receipt Date: 20121108
  Transmission Date: 20130627
  Serious: Yes (Death, Other)
  Sender: FDA-Public Use
  Company Number: PHHY2012EC102028

PATIENT
  Age: 60 Year
  Sex: Male

DRUGS (1)
  1. EXFORGE [Suspect]
     Indication: HYPERTENSION
     Dosage: 1 DF(160/10mg), daily
     Route: 048
     Dates: start: 20111028

REACTIONS (3)
  - Myocardial infarction [Fatal]
  - Chest pain [Unknown]
  - Cardiac arrest [Fatal]
